FAERS Safety Report 8195560-1 (Version None)
Quarter: 2012Q1

REPORT INFORMATION
  Report Type: 
  Country: None (occurrence: None)
  Receive Date: 20120308
  Receipt Date: 20120306
  Transmission Date: 20120608
  Serious: Yes (Death, Other)
  Sender: FDA-Public Use
  Company Number: PHHY2012MX019944

PATIENT
  Sex: Female

DRUGS (1)
  1. DIOVAN HCT [Suspect]
     Indication: HYPERTENSION
     Dosage: 2 TABLETS (80/12.5 MG) DAILY
     Route: 048
     Dates: start: 20100313

REACTIONS (6)
  - HEPATITIS [None]
  - DIARRHOEA [None]
  - DIABETES MELLITUS [None]
  - JAUNDICE [None]
  - PANCREATIC CARCINOMA [None]
  - ABDOMINAL PAIN UPPER [None]
